FAERS Safety Report 8571958-4 (Version None)
Quarter: 2012Q2

REPORT INFORMATION
  Report Type: 
  Country: None (occurrence: None)
  Receive Date: 20120418
  Receipt Date: 20100528
  Transmission Date: 20120825
  Serious: Yes (Other)
  Sender: FDA-Public Use
  Company Number: PHEH2007US06676

PATIENT
  Age: 59 Year
  Sex: Female

DRUGS (3)
  1. DIOVAN HCT [Suspect]
     Indication: HYPERTENSION
     Dosage: 320/25 MG, QD ; 320MG VAL/25MG HCT, 1/2 TAB QD ; 320MG VAL/25MG HCT, QD
     Dates: start: 20070401, end: 20070401
  2. DIOVAN HCT [Suspect]
     Indication: HYPERTENSION
     Dosage: 320/25 MG, QD ; 320MG VAL/25MG HCT, 1/2 TAB QD ; 320MG VAL/25MG HCT, QD
     Dates: start: 20070401, end: 20070401
  3. DIOVAN HCT [Suspect]
     Indication: HYPERTENSION
     Dosage: 320/25 MG, QD ; 320MG VAL/25MG HCT, 1/2 TAB QD ; 320MG VAL/25MG HCT, QD
     Dates: start: 20070401

REACTIONS (7)
  - HYPERTENSION [None]
  - FEELING HOT [None]
  - INCORRECT DOSE ADMINISTERED [None]
  - MALAISE [None]
  - BLOOD PRESSURE INCREASED [None]
  - BLOOD PRESSURE DECREASED [None]
  - DRUG DOSE OMISSION [None]
